FAERS Safety Report 6377343-8 (Version None)
Quarter: 2009Q3

REPORT INFORMATION
  Report Type: 
  Country: None (occurrence: None)
  Receive Date: 20090925
  Receipt Date: 20090917
  Transmission Date: 20100115
  Serious: Yes (Death, Life-Threatening, Hospitalization)
  Sender: FDA-Public Use
  Company Number: FR-PFIZER INC-2009270303

PATIENT
  Age: 47 Year

DRUGS (6)
  1. TAHOR [Suspect]
     Dosage: UNK
     Route: 048
     Dates: start: 20090415, end: 20090730
  2. PLAVIX [Suspect]
     Dosage: UNK
     Route: 048
     Dates: start: 20090415, end: 20090811
  3. TRIATEC [Suspect]
     Dosage: UNK
     Route: 048
     Dates: start: 20090415, end: 20090811
  4. BISOPROLOL FUMARATE [Suspect]
     Dosage: UNK
     Route: 048
     Dates: start: 20090415, end: 20090828
  5. OMACOR [Suspect]
     Dosage: UNK
     Route: 048
     Dates: start: 20090415, end: 20090730
  6. KARDEGIC [Suspect]
     Dosage: UNK
     Dates: start: 20090415, end: 20090828

REACTIONS (3)
  - HEPATITIS FULMINANT [None]
  - INFECTION [None]
  - SUDDEN DEATH [None]
